FAERS Safety Report 24826085 (Version 3)
Quarter: 2025Q1

REPORT INFORMATION
  Report Type: Spontaneous
  Country: IN (occurrence: IN)
  Receive Date: 20250109
  Receipt Date: 20250110
  Transmission Date: 20250408
  Serious: Yes (Death, Life-Threatening, Other)
  Sender: PFIZER
  Company Number: IN-PFIZER INC-PV202500001172

PATIENT
  Age: 23 Year
  Sex: Female

DRUGS (2)
  1. TRANEXAMIC ACID [Suspect]
     Active Substance: TRANEXAMIC ACID
     Route: 037
  2. BUPIVACAINE [Suspect]
     Active Substance: BUPIVACAINE

REACTIONS (6)
  - Wrong product administered [Fatal]
  - Incorrect route of product administration [Fatal]
  - Product packaging confusion [Fatal]
  - Respiratory failure [Fatal]
  - Cardiac arrest [Fatal]
  - Generalised tonic-clonic seizure [Unknown]
